FAERS Safety Report 8461715-1 (Version None)
Quarter: 2012Q2

REPORT INFORMATION
  Report Type: 
  Country: None (occurrence: None)
  Receive Date: 20120625
  Receipt Date: 20120620
  Transmission Date: 20120825
  Serious: Yes (Other)
  Sender: FDA-Public Use
  Company Number: PHHY2012FR042135

PATIENT
  Sex: Female

DRUGS (5)
  1. PLAVIX [Concomitant]
  2. VALSARTAN  AND HYDROCHLOROTHIAZIDE [Suspect]
     Indication: HYPERTENSION
     Dosage: 1 DF (160 MG VALSAR AND 25 MG HYDROCHLO), DAILY
     Route: 048
     Dates: start: 20100101
  3. ASPIRIN [Suspect]
     Dosage: 75 MG, DAILY
     Route: 048
     Dates: start: 20100101
  4. ADANCOR [Suspect]
     Dosage: 10 MG, BID
     Route: 048
     Dates: start: 20100101
  5. LEVOTHYROXINE SODIUM [Suspect]
     Dosage: 25 MG, DAILY
     Route: 048
     Dates: start: 20100101

REACTIONS (11)
  - OCULAR ICTERUS [None]
  - ASTHENIA [None]
  - JAUNDICE [None]
  - URINE COLOUR ABNORMAL [None]
  - SKIN EXFOLIATION [None]
  - BLOOD CREATININE INCREASED [None]
  - CREATININE RENAL CLEARANCE DECREASED [None]
  - FATIGUE [None]
  - MYOCARDIAL INFARCTION [None]
  - DRY SKIN [None]
  - BLOOD BILIRUBIN INCREASED [None]
